FAERS Safety Report 16208368 (Version 5)
Quarter: 2025Q3

REPORT INFORMATION
  Report Type: Report from Study
  Country: US (occurrence: US)
  Receive Date: 20190417
  Receipt Date: 20250926
  Transmission Date: 20251021
  Serious: Yes (Other)
  Sender: TAKEDA
  Company Number: US-SHIRE-US201900034

PATIENT
  Age: 63 Year
  Sex: Female

DRUGS (5)
  1. TEDUGLUTIDE [Suspect]
     Active Substance: TEDUGLUTIDE
     Indication: Short-bowel syndrome
     Dosage: UNK UNK, QD
  2. TEDUGLUTIDE [Suspect]
     Active Substance: TEDUGLUTIDE
  3. TEDUGLUTIDE [Suspect]
     Active Substance: TEDUGLUTIDE
  4. TEDUGLUTIDE [Suspect]
     Active Substance: TEDUGLUTIDE
     Dosage: UNK UNK, QD
  5. COVID-19 VACCINE NOS [Suspect]
     Active Substance: COVID-19 VACCINE
     Indication: COVID-19 immunisation

REACTIONS (9)
  - Renal disorder [Unknown]
  - Diarrhoea [Unknown]
  - Rotator cuff syndrome [Not Recovered/Not Resolved]
  - Chills [Unknown]
  - Pain [Unknown]
  - Food allergy [Unknown]
  - Needle issue [Unknown]
  - Influenza [Unknown]
  - Foot fracture [Unknown]
